FAERS Safety Report 4611528-3 (Version None)
Quarter: 2005Q1

REPORT INFORMATION
  Report Type: 
  Country: None (occurrence: None)
  Receive Date: 20050316
  Receipt Date: 20050316
  Transmission Date: 20050727
  Serious: Yes (Other)
  Sender: FDA-Public Use
  Company Number: None

PATIENT
  Age: 67 Year
  Sex: Female

DRUGS (1)
  1. HYTRIN [Suspect]
     Indication: PROSTATIC DISORDER
     Dosage: TAKE ONE CAPSULE AT BEDTIME
     Dates: start: 20050215, end: 20050308

REACTIONS (3)
  - PHARMACEUTICAL PRODUCT COMPLAINT [None]
  - PROSTATIC DISORDER [None]
  - URINARY TRACT DISORDER [None]
